FAERS Safety Report 11987962 (Version 2)
Quarter: 2016Q2

REPORT INFORMATION
  Report Type: Spontaneous
  Country: US (occurrence: US)
  Receive Date: 20160202
  Receipt Date: 20160401
  Transmission Date: 20160815
  Serious: No
  Sender: FDA-Public Use
  Company Number: US-009507513-1601USA009229

PATIENT
  Sex: Female
  Weight: 68.48 kg

DRUGS (1)
  1. NEXPLANON [Suspect]
     Active Substance: ETONOGESTREL
     Indication: CONTRACEPTION
     Dosage: UNK
     Route: 059
     Dates: start: 20150708

REACTIONS (3)
  - Implant site pain [Unknown]
  - Pain [Unknown]
  - Pruritus [Unknown]
